FAERS Safety Report 8715805 (Version 2)
Quarter: 2012Q4

REPORT INFORMATION
  Report Type: 
  Country: FR (occurrence: FR)
  Receive Date: 20120809
  Receipt Date: 20121031
  Transmission Date: 20130627
  Serious: Yes (Hospitalization)
  Sender: FDA-Public Use
  Company Number: FR-ELI_LILLY_AND_COMPANY-FR201207008710

PATIENT
  Age: 63 Year
  Sex: Male

DRUGS (16)
  1. ALIMTA [Suspect]
     Indication: LUNG ADENOCARCINOMA
     Dosage: 900 mg, UNK
     Route: 042
     Dates: start: 20120305, end: 20120315
  2. CISPLATINE [Concomitant]
     Dosage: 140 mg, UNK
     Dates: start: 20120305, end: 20120515
  3. DEXAMETHASONE [Concomitant]
     Dosage: 4 mg, UNK
     Dates: start: 20120304, end: 20120516
  4. SPECIAFOLDINE [Concomitant]
     Dosage: 0.4 mg, UNK
     Dates: start: 201203
  5. VITAMIN B12 [Concomitant]
     Dosage: 1000 mg, other
  6. ZOMETA [Concomitant]
     Dosage: UNK
     Dates: start: 20120515, end: 20120515
  7. LYRICA [Concomitant]
  8. OXYCONTIN [Concomitant]
     Dosage: 90 mg, UNK
  9. EMEND [Concomitant]
     Dosage: 125 mg, UNK
     Dates: start: 20120305, end: 20120515
  10. ONDANSETRON [Concomitant]
     Dosage: 8 mg, unknown
  11. METHYLPREDNISOLONE [Concomitant]
     Dosage: 120 mg, UNK
     Dates: start: 20120305, end: 20120515
  12. OXYNORM [Concomitant]
     Dosage: 5 mg, other
  13. SOLUMEDROL [Concomitant]
     Dosage: UNK
  14. LAROXYL [Concomitant]
     Dosage: UNK
     Dates: start: 20120629
  15. LYSANXIA [Concomitant]
     Dosage: UNK
  16. SCOPOLAMINE [Concomitant]
     Dosage: UNK

REACTIONS (2)
  - Dyspnoea [Not Recovered/Not Resolved]
  - Haemolytic anaemia [Not Recovered/Not Resolved]
